FAERS Safety Report 13636633 (Version 1)
Quarter: 2017Q2

REPORT INFORMATION
  Report Type: Spontaneous
  Country: US (occurrence: US)
  Receive Date: 20170531
  Receipt Date: 20170531
  Transmission Date: 20170830
  Serious: No
  Sender: FDA-Public Use
  Company Number: US-ASTELLAS-1837507

PATIENT
  Age: 81 Year
  Sex: Female

DRUGS (4)
  1. CRESTOR [Concomitant]
     Active Substance: ROSUVASTATIN CALCIUM
  2. TARCEVA [Suspect]
     Active Substance: ERLOTINIB HYDROCHLORIDE
     Indication: LUNG NEOPLASM MALIGNANT
     Route: 048
     Dates: start: 20160923
  3. AMLODIPINE BESYLATE. [Concomitant]
     Active Substance: AMLODIPINE BESYLATE
  4. VALSARTAN. [Concomitant]
     Active Substance: VALSARTAN

REACTIONS (4)
  - Peripheral swelling [Unknown]
  - Joint swelling [Unknown]
  - Muscle spasms [Unknown]
  - Vision blurred [Unknown]

NARRATIVE: CASE EVENT DATE: 20160929
